FAERS Safety Report 6057807-7 (Version None)
Quarter: 2009Q1

REPORT INFORMATION
  Report Type: 
  Country: None (occurrence: None)
  Receive Date: 20090129
  Receipt Date: 20090119
  Transmission Date: 20090719
  Serious: Yes (Hospitalization)
  Sender: FDA-Public Use
  Company Number: CR-ASTRAZENECA-2009UW00211

PATIENT
  Age: 13503 Day
  Sex: Female

DRUGS (6)
  1. QUETIAPINE XR [Suspect]
     Indication: SCHIZOPHRENIA
     Route: 048
     Dates: start: 20081009, end: 20081009
  2. QUETIAPINE XR [Suspect]
     Route: 048
     Dates: start: 20081010, end: 20081010
  3. QUETIAPINE XR [Suspect]
     Route: 048
     Dates: start: 20081011, end: 20081230
  4. QUETIAPINE XR [Suspect]
     Route: 048
     Dates: start: 20081231, end: 20081231
  5. PERPHENAZINE [Concomitant]
     Indication: SCHIZOPHRENIA
     Route: 048
     Dates: start: 20070201, end: 20081009
  6. BIPERIDEN HYDROCHLORIDE TAB [Concomitant]
     Indication: SCHIZOPHRENIA
     Route: 048
     Dates: start: 20070201, end: 20081009

REACTIONS (1)
  - PSYCHOTIC DISORDER [None]
